FAERS Safety Report 23916027 (Version 1)
Quarter: 2024Q2

REPORT INFORMATION
  Report Type: Spontaneous
  Country: JP (occurrence: JP)
  Receive Date: 20240529
  Receipt Date: 20240529
  Transmission Date: 20240716
  Serious: Yes (Death)
  Sender: FDA-Public Use
  Company Number: JP-Eisai-202402286_LEN-RCC_P_1

PATIENT
  Age: 49 Year
  Sex: Male

DRUGS (3)
  1. LENVIMA [Suspect]
     Active Substance: LENVATINIB
     Indication: Renal cell carcinoma
     Route: 048
     Dates: start: 202404
  2. KEYTRUDA [Suspect]
     Active Substance: PEMBROLIZUMAB
     Indication: Renal cell carcinoma
     Route: 041
     Dates: start: 202404
  3. LEVOTHYROXINE [Concomitant]
     Active Substance: LEVOTHYROXINE\LEVOTHYROXINE SODIUM
     Dosage: DOSE AND FREQUENCY UNKNOWN
     Route: 065
     Dates: start: 2024

REACTIONS (2)
  - Malignant neoplasm progression [Fatal]
  - Immune-mediated hypothyroidism [Unknown]

NARRATIVE: CASE EVENT DATE: 20240401
